FAERS Safety Report 4774815-4 (Version None)
Quarter: 2005Q3

REPORT INFORMATION
  Report Type: 
  Country: None (occurrence: None)
  Receive Date: 20050919
  Receipt Date: 20050907
  Transmission Date: 20060218
  Serious: Yes (Other)
  Sender: FDA-Public Use
  Company Number: 2005125061

PATIENT
  Age: 73 Year
  Sex: Female
  Weight: 71.6683 kg

DRUGS (4)
  1. BENADRYL [Suspect]
     Indication: ARTHROPOD BITE
     Dosage: 3 TSP ONCE ORAL
     Route: 048
     Dates: start: 20050715, end: 20050715
  2. DESLORATADINE (DESLORATADINE) [Concomitant]
  3. MOMETASONE FUROATE [Concomitant]
  4. SIMVASTATIN [Concomitant]

REACTIONS (4)
  - HYPERSENSITIVITY [None]
  - PHARYNGEAL OEDEMA [None]
  - REACTION TO FOOD ADDITIVE [None]
  - SWELLING FACE [None]
